FAERS Safety Report 20067382 (Version 1)
Quarter: 2021Q4

REPORT INFORMATION
  Report Type: Spontaneous
  Country: FR (occurrence: FR)
  Receive Date: 20211115
  Receipt Date: 20211115
  Transmission Date: 20220303
  Serious: Yes (Hospitalization, Other)
  Sender: FDA-Public Use
  Company Number: FR-AFSSAPS-RN20213215

PATIENT
  Age: 71 Year
  Sex: Female
  Weight: 105 kg

DRUGS (1)
  1. AMOXICILLIN [Suspect]
     Active Substance: AMOXICILLIN
     Indication: Streptococcal bacteraemia
     Dosage: 2 GRAM, EVERY FOUR HOUR(2G TOUTES LES 4H)
     Route: 042
     Dates: start: 20210902, end: 20210905

REACTIONS (1)
  - Acute kidney injury [Recovering/Resolving]

NARRATIVE: CASE EVENT DATE: 20210905
